FAERS Safety Report 6455960-4 (Version None)
Quarter: 2009Q4

REPORT INFORMATION
  Report Type: 
  Country: None (occurrence: None)
  Receive Date: 20091119
  Receipt Date: 20091106
  Transmission Date: 20100525
  Serious: Yes (Hospitalization)
  Sender: FDA-Public Use
  Company Number: 1000010156

PATIENT
  Age: 85 Year
  Sex: Male

DRUGS (5)
  1. ESCITALOPRAM [Suspect]
     Dosage: 15 MG (15 MG, 1 IN 1 D), ORAL
     Route: 048
     Dates: end: 20091012
  2. EXELON [Suspect]
     Dosage: 9.5 MG (9.5 MG, 1 IN 1 D), TRANSDERMAL
     Route: 062
     Dates: end: 20091012
  3. ALDACTAZINE [Concomitant]
  4. GINKOR [Concomitant]
  5. METEOSPASMYL [Concomitant]

REACTIONS (1)
  - CONVULSION [None]
